FAERS Safety Report 8431374-2 (Version None)
Quarter: 2012Q2

REPORT INFORMATION
  Report Type: 
  Country: None (occurrence: None)
  Receive Date: 20120613
  Receipt Date: 20120606
  Transmission Date: 20120825
  Serious: Yes (Other)
  Sender: FDA-Public Use
  Company Number: US-PFIZER INC-2012136914

PATIENT
  Sex: Female
  Weight: 48.073 kg

DRUGS (3)
  1. XALATAN [Suspect]
     Indication: CATARACT
  2. XALATAN [Suspect]
     Indication: ASTIGMATISM
  3. XALATAN [Suspect]
     Indication: GLAUCOMA
     Dosage: 1 GTT, 1X/DAY, EACH EYE
     Route: 047

REACTIONS (4)
  - GLAUCOMA [None]
  - CATARACT [None]
  - ASTIGMATISM [None]
  - ANXIETY [None]
